FAERS Safety Report 10755998 (Version 3)
Quarter: 2015Q3

REPORT INFORMATION
  Report Type: Spontaneous
  Country: US (occurrence: US)
  Receive Date: 20150202
  Receipt Date: 20150701
  Transmission Date: 20151125
  Serious: Yes (Hospitalization, Other)
  Sender: FDA-Public Use
  Company Number: US-009507513-1002USA03472

PATIENT
  Sex: Female
  Weight: 66.22 kg

DRUGS (9)
  1. BONIVA [Suspect]
     Active Substance: IBANDRONATE SODIUM
     Dosage: 150 MG, QM
     Dates: start: 200409, end: 201001
  2. BONIVA [Suspect]
     Active Substance: IBANDRONATE SODIUM
     Indication: OSTEOPOROSIS
     Dosage: 70 MG, UNK
     Dates: start: 200506, end: 20100216
  3. FOSAMAX [Suspect]
     Active Substance: ALENDRONATE SODIUM
     Indication: OSTEOPOROSIS
     Dosage: 10 MG, QD
     Route: 048
     Dates: start: 19980401, end: 20000425
  4. FOSAMAX [Suspect]
     Active Substance: ALENDRONATE SODIUM
     Dosage: 70 MG, QW
     Route: 048
     Dates: start: 200506, end: 20100216
  5. CALCIUM (UNSPECIFIED) (+) VITAMIN D (UNSPECIFIED) [Concomitant]
     Active Substance: CALCIUM CARBONATE\VITAMIN D
     Dosage: UNK
     Dates: start: 1998
  6. IBANDRONATE SODIUM. [Suspect]
     Active Substance: IBANDRONATE SODIUM
     Indication: OSTEOPOROSIS
     Dosage: 150 MG, QM
     Dates: start: 200409, end: 201002
  7. FOSAMAX [Suspect]
     Active Substance: ALENDRONATE SODIUM
     Dosage: 70 MG, QW
     Route: 048
     Dates: start: 20000425, end: 20040923
  8. ALENDRONATE SODIUM. [Suspect]
     Active Substance: ALENDRONATE SODIUM
     Indication: OSTEOPOROSIS
     Route: 048
  9. BONIVA [Suspect]
     Active Substance: IBANDRONATE SODIUM
     Indication: OSTEOPOROSIS
     Dosage: 150 MG, QM
     Dates: start: 20040923, end: 200506

REACTIONS (22)
  - Femur fracture [Unknown]
  - Ligament sprain [Unknown]
  - Stress fracture [Recovered/Resolved]
  - Abdominoplasty [Unknown]
  - Transfusion [Unknown]
  - Femur fracture [Recovered/Resolved]
  - Hypothyroidism [Unknown]
  - Fall [Recovered/Resolved]
  - Femur fracture [Recovered/Resolved]
  - Foot fracture [Recovered/Resolved]
  - Vitamin D deficiency [Unknown]
  - Hypertension [Unknown]
  - Calcium deficiency [Unknown]
  - Low turnover osteopathy [Unknown]
  - Blood calcium decreased [Unknown]
  - Blood cholesterol increased [Unknown]
  - Bone metabolism disorder [Unknown]
  - Vitamin D decreased [Unknown]
  - Diabetes mellitus [Unknown]
  - Foot fracture [Unknown]
  - Limb asymmetry [Unknown]
  - Pain in extremity [Recovered/Resolved]

NARRATIVE: CASE EVENT DATE: 20050517
